FAERS Safety Report 10082987 (Version 1)
Quarter: 2014Q2

REPORT INFORMATION
  Report Type: Report from Study
  Country: US (occurrence: US)
  Receive Date: 20140417
  Receipt Date: 20140417
  Transmission Date: 20141212
  Serious: Yes (Other)
  Sender: FDA-Public Use
  Company Number: US-ROCHE-1382167

PATIENT
  Sex: Female
  Weight: 21 kg

DRUGS (8)
  1. SOMATROPIN [Suspect]
     Indication: PRODUCT USED FOR UNKNOWN INDICATION
     Dosage: DAILY
     Route: 058
     Dates: start: 201403
  2. AMLODIPINE [Concomitant]
     Route: 048
  3. FERROUS SULFATE [Concomitant]
     Route: 048
  4. LABETALOL [Concomitant]
     Route: 048
  5. KAYEXALATE [Concomitant]
     Route: 048
  6. CALCITROL [Concomitant]
     Route: 048
  7. PROGRAF [Concomitant]
     Route: 065
  8. SIROLIMUS [Concomitant]

REACTIONS (5)
  - Hyperkalaemia [Unknown]
  - Blood pressure systolic increased [Unknown]
  - Renal impairment [Unknown]
  - Shoulder deformity [Unknown]
  - Limb asymmetry [Unknown]
